FAERS Safety Report 8418615-2 (Version None)
Quarter: 2012Q2

REPORT INFORMATION
  Report Type: 
  Country: None (occurrence: None)
  Receive Date: 20120607
  Receipt Date: 20120601
  Transmission Date: 20120825
  Serious: Yes (Other)
  Sender: FDA-Public Use
  Company Number: US-AMGEN-USASP2012034559

PATIENT
  Age: 75 Year
  Sex: Female

DRUGS (3)
  1. ENBREL [Suspect]
     Indication: SCLERODERMA
     Dosage: UNK
  2. ENBREL [Suspect]
     Indication: RHEUMATOID ARTHRITIS
  3. METHOTREXATE [Concomitant]

REACTIONS (4)
  - PAIN [None]
  - CATARACT OPERATION [None]
  - IRIDOCYCLITIS [None]
  - UVEITIS-GLAUCOMA-HYPHAEMA SYNDROME [None]
